FAERS Safety Report 11812825 (Version 1)
Quarter: 2015Q4

REPORT INFORMATION
  Report Type: Spontaneous
  Country: FR (occurrence: FR)
  Receive Date: 20151209
  Receipt Date: 20151209
  Transmission Date: 20160305
  Serious: Yes (Hospitalization)
  Sender: FDA-Public Use
  Company Number: FR-ROCHE-1674192

PATIENT
  Age: 87 Year
  Sex: Male

DRUGS (16)
  1. RIMACTAN [Suspect]
     Active Substance: RIFAMPIN
     Indication: PROSTATITIS
     Route: 048
     Dates: start: 20151023, end: 20151029
  2. NORMACOL [Concomitant]
     Active Substance: KARAYA GUM
  3. EUPANTOL [Concomitant]
     Active Substance: PANTOPRAZOLE SODIUM
  4. BACTRIM [Suspect]
     Active Substance: SULFAMETHOXAZOLE\TRIMETHOPRIM
     Indication: PROSTATITIS
     Route: 048
     Dates: start: 20151029, end: 20151102
  5. KARDEGIC [Concomitant]
     Active Substance: ASPIRIN LYSINE
  6. TAHOR [Concomitant]
     Active Substance: ATORVASTATIN CALCIUM
  7. RAMIPRIL. [Concomitant]
     Active Substance: RAMIPRIL
  8. LOVENOX [Concomitant]
     Active Substance: ENOXAPARIN SODIUM
  9. LASILIX [Concomitant]
     Active Substance: FUROSEMIDE
  10. VENTOLINE [Concomitant]
     Active Substance: ALBUTEROL
  11. ROCEPHINE [Suspect]
     Active Substance: CEFTRIAXONE SODIUM
     Indication: PROSTATITIS
     Route: 042
     Dates: start: 20151020, end: 20151029
  12. DIFFU K [Concomitant]
     Active Substance: POTASSIUM CHLORIDE
  13. COVERSYL [Concomitant]
     Active Substance: PERINDOPRIL
  14. AMLOR [Concomitant]
     Active Substance: AMLODIPINE BESYLATE
  15. OFLOCET [Suspect]
     Active Substance: OFLOXACIN
     Indication: PROSTATITIS
     Route: 048
     Dates: start: 20151102, end: 20151106
  16. TENORMIN [Concomitant]
     Active Substance: ATENOLOL

REACTIONS (1)
  - Drug-induced liver injury [Recovering/Resolving]

NARRATIVE: CASE EVENT DATE: 20151029
